FAERS Safety Report 23601804 (Version 1)
Quarter: 2024Q1

REPORT INFORMATION
  Report Type: Spontaneous
  Country: US (occurrence: None)
  Receive Date: 20240306
  Receipt Date: 20240306
  Transmission Date: 20240410
  Serious: Yes (Death)
  Sender: FDA-Public Use
  Company Number: None

PATIENT
  Age: 82 Year
  Sex: Male

DRUGS (5)
  1. CAPECITABINE [Suspect]
     Active Substance: CAPECITABINE
  2. ALLOPURINOL [Suspect]
     Active Substance: ALLOPURINOL
  3. FLUTICASONE [Suspect]
     Active Substance: FLUTICASONE
  4. LISINOPRIL [Suspect]
     Active Substance: LISINOPRIL
  5. MELATONIN [Suspect]
     Active Substance: MELATONIN

REACTIONS (1)
  - Pancreatic carcinoma [None]

NARRATIVE: CASE EVENT DATE: 20240301
